FAERS Safety Report 8373315-2 (Version None)
Quarter: 2012Q2

REPORT INFORMATION
  Report Type: 
  Country: None (occurrence: None)
  Receive Date: 20120521
  Receipt Date: 20120511
  Transmission Date: 20120825
  Serious: Yes (Hospitalization, Other)
  Sender: FDA-Public Use
  Company Number: JP-VERTEX PHARMACEUTICALS INC.-AE-2012-004786

PATIENT
  Age: 51 Year
  Sex: Male

DRUGS (9)
  1. REBETOL [Concomitant]
     Indication: HEPATITIS C
     Route: 048
     Dates: start: 20120202, end: 20120228
  2. PEG-INTRON [Concomitant]
     Indication: HEPATITIS C
     Dates: start: 20120202, end: 20120224
  3. URSO 250 [Concomitant]
     Route: 048
     Dates: start: 20120315
  4. TELAVIC (TELAPREVIR) [Suspect]
     Indication: HEPATITIS C
     Route: 048
     Dates: start: 20120202, end: 20120228
  5. TELAVIC (TELAPREVIR) [Suspect]
     Route: 048
     Dates: start: 20120229, end: 20120305
  6. FAMOTIDINE [Concomitant]
     Route: 048
  7. REBETOL [Concomitant]
     Route: 048
     Dates: start: 20120229, end: 20120305
  8. MUCOSTA [Concomitant]
     Route: 048
     Dates: start: 20120217
  9. MARZULENE-S [Concomitant]
     Route: 048

REACTIONS (5)
  - PANCYTOPENIA [None]
  - EPISTAXIS [None]
  - MALAISE [None]
  - DECREASED APPETITE [None]
  - DYSGEUSIA [None]
